FAERS Safety Report 21662996 (Version 7)
Quarter: 2023Q1

REPORT INFORMATION
  Report Type: Report from Study
  Country: GB (occurrence: GB)
  Receive Date: 20221130
  Receipt Date: 20230227
  Transmission Date: 20230418
  Serious: Yes (Hospitalization)
  Sender: FDA-Public Use
  Company Number: GB-GLAXOSMITHKLINE-GB2022GSK177152

PATIENT

DRUGS (9)
  1. BELANTAMAB MAFODOTIN [Suspect]
     Active Substance: BELANTAMAB MAFODOTIN
     Indication: Plasma cell myeloma refractory
     Dosage: 250 MG, Q4W (DAY 1 OF 28-DAY CYCLE)
     Route: 042
     Dates: start: 20221011
  2. POMALIDOMIDE [Suspect]
     Active Substance: POMALIDOMIDE
     Indication: Plasma cell myeloma refractory
     Dosage: 4 MG, CYC, (DAYS 1-21 OF 28-DAY CYCLE)
     Route: 048
     Dates: start: 20221011, end: 20221031
  3. POMALIDOMIDE [Suspect]
     Active Substance: POMALIDOMIDE
     Dosage: 4 MG, CYC, (DAYS 1-21 OF 28-DAY CYCLE)
     Route: 048
     Dates: start: 20221115
  4. DEXAMETHASONE [Suspect]
     Active Substance: DEXAMETHASONE
     Indication: Plasma cell myeloma refractory
     Dosage: 40 MG, CYC (DAYS 1, 8, 15, 22 OF 28-DAY CYCLE)
     Route: 048
     Dates: start: 20221011, end: 20221101
  5. DEXAMETHASONE [Suspect]
     Active Substance: DEXAMETHASONE
     Dosage: 40 MG, CYC (DAYS 1, 8, 15, 22 OF 28-DAY CYCLE)
     Route: 048
     Dates: start: 20221115
  6. METFORMIN [Concomitant]
     Active Substance: METFORMIN HYDROCHLORIDE
     Indication: Diabetes mellitus
     Dosage: 500 MG, BID
     Route: 048
     Dates: start: 1992
  7. GLICLAZIDE [Concomitant]
     Active Substance: GLICLAZIDE
     Indication: Diabetes mellitus
     Dosage: 80 MG, QD
     Route: 048
     Dates: start: 1992
  8. ATENOLOL [Concomitant]
     Active Substance: ATENOLOL
     Indication: Hypertension
     Dosage: 100 MG, QD
     Route: 048
     Dates: start: 1982
  9. AMLODIPINE [Concomitant]
     Active Substance: AMLODIPINE BESYLATE
     Indication: Hypertension
     Dosage: 10 MG, QD
     Route: 048
     Dates: start: 1982

REACTIONS (1)
  - Acute myocardial infarction [Recovered/Resolved with Sequelae]

NARRATIVE: CASE EVENT DATE: 20221121
